FAERS Safety Report 5720567-0 (Version None)
Quarter: 2008Q2

REPORT INFORMATION
  Report Type: 
  Country: None (occurrence: None)
  Receive Date: 20080428
  Receipt Date: 20080428
  Transmission Date: 20081010
  Serious: Yes (Life-Threatening)
  Sender: FDA-Public Use
  Company Number: None

PATIENT
  Age: 26 Year
  Sex: Female
  Weight: 79.8 kg

DRUGS (1)
  1. TUBERSOL [Suspect]
     Dosage: ONCE ID
     Route: 023

REACTIONS (5)
  - INJECTION SITE ERYTHEMA [None]
  - INJECTION SITE VESICLES [None]
  - RASH [None]
  - URTICARIA [None]
  - WHEEZING [None]
